FAERS Safety Report 24623232 (Version 1)
Quarter: 2024Q4

REPORT INFORMATION
  Report Type: Spontaneous
  Country: US (occurrence: US)
  Receive Date: 20241115
  Receipt Date: 20241115
  Transmission Date: 20250114
  Serious: Yes (Other)
  Sender: TEVA
  Company Number: US-TEVA-VS-3264015

PATIENT
  Sex: Male

DRUGS (1)
  1. MESALAMINE [Suspect]
     Active Substance: MESALAMINE
     Indication: Colitis ulcerative
     Dosage: SINCE 5 YEARS, DELAYED RELEASE
     Route: 065
     Dates: start: 2019

REACTIONS (5)
  - Haemorrhage [Unknown]
  - Product quality issue [Unknown]
  - Diarrhoea [Unknown]
  - Drug ineffective [Unknown]
  - Muscle spasms [Unknown]

NARRATIVE: CASE EVENT DATE: 20240101
